FAERS Safety Report 9553911 (Version 1)
Quarter: 2013Q3

REPORT INFORMATION
  Report Type: Spontaneous
  Country: US (occurrence: None)
  Receive Date: 20130913
  Receipt Date: 20130913
  Transmission Date: 20140515
  Serious: No
  Sender: FDA-Public Use
  Company Number: 1000045587

PATIENT
  Age: 72 Year
  Sex: Male
  Weight: 93.44 kg

DRUGS (11)
  1. DALIRESP [Suspect]
     Indication: CHRONIC OBSTRUCTIVE PULMONARY DISEASE
     Dosage: 500 MCG (500 MCG, 1 IN 1 D), ORAL
     Route: 048
     Dates: start: 20130117, end: 20130524
  2. MIDAMOR (AMILORIDE HYDROCHLORIDE) (AMILORIDE HYDROCHLORIDE) [Concomitant]
  3. ASPIRIN (ACETYLSALICYLIC ACID) (ACETYLSALICYLIC ACID) [Concomitant]
  4. FLOMAX (TAMSULOSIN) (TAMSULOSIN) [Concomitant]
  5. OMEPRAZOLER (OMEPRAZOLE) (OMPRAZOLE) [Concomitant]
  6. SPIRIVA (TIOTROPIUM BROMIDE) (TIOTROPIUM BROMIDE) [Concomitant]
  7. VENTOLIN HFA (SALBUTAMOL SULFATE) (SALBUTAMOL SULFATE) [Concomitant]
  8. VITAMIN B (VITAMIN B COMPLEX) (VITAMIN B COMPLEX) [Concomitant]
  9. ZINC (ZINC) (ZINC) [Concomitant]
  10. NAPROSYN (NAPROXEN) (NAPROXEN) [Concomitant]
  11. MUCINEX [Concomitant]

REACTIONS (10)
  - Weight decreased [None]
  - Nausea [None]
  - Diarrhoea [None]
  - Dizziness [None]
  - Depression [None]
  - Insomnia [None]
  - Decreased appetite [None]
  - Urine output decreased [None]
  - Ageusia [None]
  - Anosmia [None]
